FAERS Safety Report 14303436 (Version 1)
Quarter: 2017Q4

REPORT INFORMATION
  Report Type: Spontaneous
  Country: IT (occurrence: IT)
  Receive Date: 20171219
  Receipt Date: 20171219
  Transmission Date: 20180321
  Serious: Yes (Hospitalization, Other)
  Sender: FDA-Public Use
  Company Number: IT-OTSUKA-2015_014406

PATIENT
  Age: 46 Year
  Sex: Male

DRUGS (3)
  1. DELORAZEPAM [Suspect]
     Active Substance: DELORAZEPAM
     Indication: DRUG ABUSE
     Dosage: 10 ML, UNK
     Route: 048
     Dates: start: 20151029, end: 20151029
  2. ARIPIPRAZOLE. [Suspect]
     Active Substance: ARIPIPRAZOLE
     Indication: DRUG ABUSE
     Dosage: 210 MG, UNK
     Route: 048
     Dates: start: 20151029, end: 20151029
  3. DEPAKINE CHRONO [Suspect]
     Active Substance: VALPROATE SODIUM
     Indication: DRUG ABUSE
     Dosage: 15000 MG, UNK
     Route: 048
     Dates: start: 20151029, end: 20151029

REACTIONS (5)
  - Confusional state [Unknown]
  - Intentional overdose [Unknown]
  - Sopor [Unknown]
  - Product use in unapproved indication [Unknown]
  - Suicide attempt [Unknown]

NARRATIVE: CASE EVENT DATE: 20151029
